FAERS Safety Report 11116554 (Version 2)
Quarter: 2015Q2

REPORT INFORMATION
  Report Type: Other
  Country: US (occurrence: US)
  Receive Date: 20150515
  Receipt Date: 20150603
  Transmission Date: 20150821
  Serious: Yes (Other)
  Sender: FDA-Public Use
  Company Number: US-SHIRE-US201504176

PATIENT
  Age: 40 Year
  Sex: Female

DRUGS (3)
  1. CINRYZE [Suspect]
     Active Substance: HUMAN C1-ESTERASE INHIBITOR
     Indication: HEREDITARY ANGIOEDEMA
     Dosage: 1000 UNITS, OTHER (THREE TIMES A WEEK)
     Route: 042
     Dates: start: 20130605
  2. CINRYZE [Suspect]
     Active Substance: HUMAN C1-ESTERASE INHIBITOR
     Indication: PROPHYLAXIS
  3. FIRAZYR [Suspect]
     Active Substance: ICATIBANT ACETATE
     Indication: HEREDITARY ANGIOEDEMA
     Dosage: 30 MG, AS REQ^D (ONE SYRINGE EVERY 6 HOURS AS NEEDED)
     Route: 058
     Dates: start: 20131205

REACTIONS (6)
  - Pharyngeal oedema [Unknown]
  - Hereditary angioedema [Unknown]
  - Hypersensitivity [Unknown]
  - Inappropriate schedule of drug administration [Not Recovered/Not Resolved]
  - Abdominal pain [Unknown]
  - Pruritus generalised [Unknown]

NARRATIVE: CASE EVENT DATE: 20130605
